FAERS Safety Report 16153119 (Version 1)
Quarter: 2019Q2

REPORT INFORMATION
  Report Type: Report from Study
  Country: PT (occurrence: PT)
  Receive Date: 20190403
  Receipt Date: 20190403
  Transmission Date: 20190711
  Serious: Yes (Other)
  Sender: FDA-Public Use
  Company Number: PT-TEVA-2019-PT-1032551

PATIENT
  Age: 52 Year
  Sex: Female

DRUGS (6)
  1. 177LU-DOTA-TATE [Suspect]
     Active Substance: LUTETIUM OXODOTREOTIDE LU-177
     Indication: INSULINOMA
     Dosage: TWO CYCLES ADMINISTERED
     Route: 065
  2. OCTREOTIDE. [Concomitant]
     Active Substance: OCTREOTIDE
     Dosage: LONG-ACTING REPEATABLE
     Route: 030
  3. STREPTOZOCIN [Suspect]
     Active Substance: STREPTOZOCIN
     Indication: INSULINOMA
     Route: 065
  4. FLUOROURACIL. [Suspect]
     Active Substance: FLUOROURACIL
     Indication: INSULINOMA
     Route: 065
  5. DIAZOXIDE [Suspect]
     Active Substance: DIAZOXIDE
     Indication: INSULINOMA
     Route: 065
  6. OCTREOTIDE. [Concomitant]
     Active Substance: OCTREOTIDE
     Dosage: LONG-ACTING REPEATABLE
     Route: 030

REACTIONS (4)
  - Nephropathy toxic [Unknown]
  - Drug ineffective [Unknown]
  - Treatment noncompliance [Unknown]
  - Oedema [Unknown]
